FAERS Safety Report 20788013 (Version 1)
Quarter: 2022Q2

REPORT INFORMATION
  Report Type: Spontaneous
  Country: US (occurrence: None)
  Receive Date: 20220505
  Receipt Date: 20220505
  Transmission Date: 20220721
  Serious: No
  Sender: FDA-Public Use
  Company Number: 2022A138690

PATIENT
  Age: 67 Year
  Sex: Female
  Weight: 102.1 kg

DRUGS (1)
  1. BUDESONIDE\FORMOTEROL\GLYCOPYRRONIUM [Suspect]
     Active Substance: BUDESONIDE\FORMOTEROL\GLYCOPYRRONIUM
     Dosage: 160/9/4.8MCG, 120 INHALATION
     Route: 055

REACTIONS (3)
  - Feeling abnormal [Unknown]
  - Device delivery system issue [Recovered/Resolved]
  - Drug dose omission by device [Recovered/Resolved]
